FAERS Safety Report 20165899 (Version 1)
Quarter: 2021Q4

REPORT INFORMATION
  Report Type: Spontaneous
  Country: US (occurrence: None)
  Receive Date: 20211208
  Receipt Date: 20211208
  Transmission Date: 20220303
  Serious: Yes (Hospitalization)
  Sender: FDA-Public Use
  Company Number: None

PATIENT
  Age: 48 Year
  Sex: Male
  Weight: 83.25 kg

DRUGS (1)
  1. REGEN-COV [Suspect]
     Active Substance: CASIRIVIMAB\IMDEVIMAB

REACTIONS (6)
  - Pyrexia [None]
  - Pulmonary pain [None]
  - Dyspnoea [None]
  - Asthenia [None]
  - Oxygen saturation decreased [None]
  - Cough [None]

NARRATIVE: CASE EVENT DATE: 20211204
